FAERS Safety Report 19585470 (Version 1)
Quarter: 2021Q3

REPORT INFORMATION
  Report Type: Spontaneous
  Country: PT (occurrence: PT)
  Receive Date: 20210720
  Receipt Date: 20210720
  Transmission Date: 20211014
  Serious: Yes (Other)
  Sender: FDA-Public Use
  Company Number: PT-SLATE RUN PHARMACEUTICALS-21PT000591

PATIENT

DRUGS (3)
  1. MEMANTINE HYDROCHLORIDE EXTENDED RELEASE CAPSULES [Suspect]
     Active Substance: MEMANTINE HYDROCHLORIDE
     Dosage: UNK
  2. MEMANTINE HYDROCHLORIDE EXTENDED RELEASE CAPSULES [Suspect]
     Active Substance: MEMANTINE HYDROCHLORIDE
     Indication: PRODUCT USED FOR UNKNOWN INDICATION
     Dosage: PROGRESSIVE DOSE INCREMENT
  3. MEMANTINE HYDROCHLORIDE EXTENDED RELEASE CAPSULES [Suspect]
     Active Substance: MEMANTINE HYDROCHLORIDE
     Dosage: UNK

REACTIONS (1)
  - Myoclonus [Recovered/Resolved]
